FAERS Safety Report 5286246-1 (Version None)
Quarter: 2007Q2

REPORT INFORMATION
  Report Type: 
  Country: None (occurrence: None)
  Receive Date: 20070404
  Receipt Date: 20070328
  Transmission Date: 20071010
  Serious: Yes (Other)
  Sender: FDA-Public Use
  Company Number: BEWYE250129MAR07

PATIENT
  Age: 44 Year
  Sex: Female

DRUGS (5)
  1. EFFEXOR [Suspect]
     Indication: DEPRESSION
     Route: 048
     Dates: start: 20070322, end: 20070325
  2. NEXIUM [Concomitant]
     Indication: REFLUX OESOPHAGITIS
     Dosage: 20 MG EVERY
     Route: 048
     Dates: start: 20041001
  3. DORMONOCT [Concomitant]
     Indication: INSOMNIA
     Dosage: 2 MG EVERY
     Route: 048
     Dates: start: 20001101
  4. KEPPRA [Concomitant]
     Indication: EPILEPSY
     Dosage: 2 G EVERY
     Route: 048
     Dates: start: 20050801
  5. LAMICTAL [Concomitant]
     Indication: EPILEPSY
     Dosage: 200 MG EVERY
     Route: 048
     Dates: start: 20001101

REACTIONS (2)
  - GRAND MAL CONVULSION [None]
  - PETIT MAL EPILEPSY [None]
